FAERS Safety Report 20194348 (Version 2)
Quarter: 2021Q4

REPORT INFORMATION
  Report Type: Spontaneous
  Country: US (occurrence: US)
  Receive Date: 20211216
  Receipt Date: 20211227
  Transmission Date: 20220303
  Serious: No
  Sender: FDA-Public Use
  Company Number: US-SANOFI-00893740

PATIENT
  Age: 57 Year
  Sex: Male

DRUGS (1)
  1. DUPIXENT [Suspect]
     Active Substance: DUPILUMAB
     Indication: Nasal polyps
     Dosage: UNK
     Route: 065

REACTIONS (5)
  - Urticaria [Unknown]
  - Rash [Unknown]
  - Surgery [Unknown]
  - Drug ineffective [Unknown]
  - Product use in unapproved indication [Unknown]
